FAERS Safety Report 16980558 (Version 1)
Quarter: 2019Q4

REPORT INFORMATION
  Report Type: Spontaneous
  Country: US (occurrence: US)
  Receive Date: 20191031
  Receipt Date: 20191031
  Transmission Date: 20200122
  Serious: Yes (Other)
  Sender: FDA-Public Use
  Company Number: US-GLAXOSMITHKLINE-US2019GSK193275

PATIENT
  Age: 60 Year
  Sex: Male

DRUGS (4)
  1. MEPOLIZUMAB [Suspect]
     Active Substance: MEPOLIZUMAB
     Indication: ASTHMA
     Dosage: 100 MG, FIRST DOSE
  2. MEPOLIZUMAB [Suspect]
     Active Substance: MEPOLIZUMAB
     Dosage: 100 MG, SECOND DOSE
  3. MEPOLIZUMAB [Suspect]
     Active Substance: MEPOLIZUMAB
     Dosage: 100 MG, FOURTH DOSE
  4. MEPOLIZUMAB [Suspect]
     Active Substance: MEPOLIZUMAB
     Dosage: 100 MG, THIRD DOSE

REACTIONS (7)
  - Herpes simplex test positive [Unknown]
  - Myelitis transverse [Unknown]
  - Muscular weakness [Unknown]
  - Cervical spinal cord paralysis [Unknown]
  - Herpes simplex [Unknown]
  - Pain in extremity [Unknown]
  - Neck pain [Unknown]
